FAERS Safety Report 22214251 (Version 1)
Quarter: 2023Q2

REPORT INFORMATION
  Report Type: Spontaneous
  Country: ES (occurrence: ES)
  Receive Date: 20230414
  Receipt Date: 20230414
  Transmission Date: 20230722
  Serious: Yes (Hospitalization, Other)
  Sender: FDA-Public Use
  Company Number: None

PATIENT

DRUGS (1)
  1. DINOPROSTONE [Suspect]
     Active Substance: DINOPROSTONE
     Indication: Labour induction
     Route: 065
     Dates: start: 20230310, end: 20230310

REACTIONS (2)
  - Heart rate increased [Unknown]
  - Device expulsion [Unknown]

NARRATIVE: CASE EVENT DATE: 20230310
